FAERS Safety Report 7723552-2 (Version None)
Quarter: 2011Q3

REPORT INFORMATION
  Report Type: 
  Country: None (occurrence: None)
  Receive Date: 20110901
  Receipt Date: 20110831
  Transmission Date: 20111222
  Serious: Yes (Life-Threatening, Hospitalization)
  Sender: FDA-Public Use
  Company Number: FR-SANOFI-AVENTIS-2011SA048489

PATIENT
  Age: 68 Year
  Sex: Female

DRUGS (8)
  1. MULTAQ [Suspect]
     Indication: ATRIAL FIBRILLATION
     Route: 048
     Dates: end: 20110630
  2. PREVISCAN [Concomitant]
     Route: 048
     Dates: end: 20110629
  3. POTASSIUM CHLORIDE [Concomitant]
  4. CYMBALTA [Concomitant]
  5. ESOMEPRAZOLE SODIUM [Concomitant]
  6. LYRICA [Concomitant]
  7. ALENDRONIC ACID [Concomitant]
  8. EZETIMIBE [Concomitant]

REACTIONS (4)
  - PROTHROMBIN TIME RATIO DECREASED [None]
  - CYTOLYTIC HEPATITIS [None]
  - CARDIOGENIC SHOCK [None]
  - RENAL TUBULAR NECROSIS [None]
